FAERS Safety Report 7178418-6 (Version None)
Quarter: 2010Q4

REPORT INFORMATION
  Report Type: 
  Country: None (occurrence: None)
  Receive Date: 20101220
  Receipt Date: 20101209
  Transmission Date: 20110411
  Serious: Yes (Other)
  Sender: FDA-Public Use
  Company Number: US-ASTRAZENECA-2010SE45863

PATIENT
  Age: 55 Year
  Sex: Male

DRUGS (9)
  1. SYMBICORT [Suspect]
     Route: 055
     Dates: start: 20100101
  2. ADVAIR [Suspect]
     Indication: ASTHMA
     Dosage: 250/50MCG, ONE PUFFS TWICE PER DAY
     Dates: start: 20080101, end: 20100701
  3. QVAR 40 [Suspect]
     Dates: start: 20100101
  4. ATENOLOL [Concomitant]
  5. PAXIL [Concomitant]
  6. PROAIR HFA [Concomitant]
  7. MILK THISTLE [Concomitant]
  8. LOVAZA [Concomitant]
  9. TIOTROPIUM [Concomitant]

REACTIONS (7)
  - APHASIA [None]
  - DRUG INEFFECTIVE [None]
  - DYSPNOEA [None]
  - FEELING OF DESPAIR [None]
  - LUNG INFECTION [None]
  - PULMONARY CONGESTION [None]
  - PYREXIA [None]
